FAERS Safety Report 9520042 (Version 1)
Quarter: 2013Q1

REPORT INFORMATION
  Report Type: Spontaneous
  Country: US (occurrence: None)
  Receive Date: 20130305
  Receipt Date: 20130305
  Transmission Date: 20140127
  Serious: Yes (Hospitalization, Disabling)
  Sender: FDA-Public Use
  Company Number: 163-21880-12082924

PATIENT
  Age: 83 Year
  Sex: Male

DRUGS (12)
  1. REVLIMID [Suspect]
     Indication: PLASMA CELL MYELOMA
     Dosage: 10 MG, 21 IN 21 D, PO
     Route: 048
     Dates: start: 20111109, end: 20120815
  2. FLOMAX (TAMSULOSIN HYDROCHLORIDE) [Concomitant]
  3. LANSOPRAZOLE (LANSOPRAZOLE) [Concomitant]
  4. SENOKOT S (COLOXYL WITH SENNA) [Concomitant]
  5. TYLOX (OXYCOCET) [Concomitant]
  6. VALTREX (VALACICLOVIR HYDROCHLORIDE) [Concomitant]
  7. ACID REDUCER (RANITIDINE HYDROCHLORIDE) [Concomitant]
  8. ASPIRIN (ACETYLSALICYLIC ACID) [Concomitant]
  9. CALTRATE D (CALCIUM CARBONATE) [Concomitant]
  10. CENTRUM SILVER (CENTRUM SILVER) [Concomitant]
  11. EMERGEN C (EMERGEN C) [Concomitant]
  12. MEGA RED (ALL OTHER THERAPEUTIC PRODUCTS) [Concomitant]

REACTIONS (2)
  - Plasma cell myeloma [None]
  - Hearing impaired [None]
